FAERS Safety Report 23487678 (Version 2)
Quarter: 2024Q1

REPORT INFORMATION
  Report Type: Spontaneous
  Country: PT (occurrence: PT)
  Receive Date: 20240206
  Receipt Date: 20240215
  Transmission Date: 20240410
  Serious: Yes (Other)
  Sender: FDA-Public Use
  Company Number: PT-B.Braun Medical Inc.-2152708

PATIENT
  Age: 52 Year
  Sex: Female

DRUGS (4)
  1. LIDOCAINE HYDROCHLORIDE [Suspect]
     Active Substance: LIDOCAINE HYDROCHLORIDE
  2. PROPOFOL [Suspect]
     Active Substance: PROPOFOL
  3. SEVOFLURANE [Suspect]
     Active Substance: SEVOFLURANE
  4. FENTANYL CITRATE [Suspect]
     Active Substance: FENTANYL CITRATE

REACTIONS (4)
  - Rectal haemorrhage [Unknown]
  - Haemolysis [Unknown]
  - Epistaxis [Unknown]
  - Urinary bladder haemorrhage [Unknown]
